FAERS Safety Report 10211669 (Version 1)
Quarter: 2014Q2

REPORT INFORMATION
  Report Type: Spontaneous
  Country: US (occurrence: US)
  Receive Date: 20140602
  Receipt Date: 20140602
  Transmission Date: 20141212
  Serious: No
  Sender: FDA-Public Use
  Company Number: US-MALLINCKRODT-T201303850

PATIENT
  Age: 56 Year
  Sex: Male
  Weight: 70.3 kg

DRUGS (3)
  1. ACETAMINOPHEN/CODEINE TABLETS [Suspect]
     Indication: BACK PAIN
     Dosage: 4 TABLETS BID
     Route: 048
     Dates: start: 201304, end: 201306
  2. ACETAMINOPHEN/CODEINE TABLETS [Suspect]
     Dosage: 4 TABLETS QD
     Dates: start: 201306
  3. OXYCODONE [Suspect]
     Indication: BACK PAIN
     Dosage: 15 MG, PRN
     Route: 048
     Dates: start: 201304

REACTIONS (3)
  - Nausea [Not Recovered/Not Resolved]
  - Drug ineffective [Not Recovered/Not Resolved]
  - Intentional product misuse [Not Recovered/Not Resolved]
